FAERS Safety Report 4598486-5 (Version None)
Quarter: 2005Q1

REPORT INFORMATION
  Report Type: 
  Country: None (occurrence: None)
  Receive Date: 20050204
  Receipt Date: 20031230
  Transmission Date: 20050727
  Serious: Yes (Hospitalization)
  Sender: FDA-Public Use
  Company Number: PHEH2004US00445

PATIENT
  Age: 52 Year
  Sex: Female

DRUGS (5)
  1. CLOZARIL [Suspect]
     Indication: SCHIZOPHRENIA
     Dosage: 200 -600 MG, QD, ORAL
     Route: 048
  2. RISPERDAL/SWE (RISPERIDONE) [Concomitant]
  3. NEXIUM /USA/ (ESOMEPRAZOLE MAGNESIUM) [Concomitant]
  4. FLOVENT [Concomitant]
  5. ATROVENT [Concomitant]

REACTIONS (1)
  - POLYDIPSIA [None]
